FAERS Safety Report 5708077-8 (Version None)
Quarter: 2008Q2

REPORT INFORMATION
  Report Type: 
  Country: None (occurrence: None)
  Receive Date: 20080417
  Receipt Date: 20080407
  Transmission Date: 20081010
  Serious: Yes (Hospitalization)
  Sender: FDA-Public Use
  Company Number: CO-ELI_LILLY_AND_COMPANY-CO200804002059

PATIENT
  Age: 52 Year
  Sex: Male

DRUGS (3)
  1. GEMZAR [Suspect]
     Indication: BLADDER CANCER
     Dosage: 1600 MG, WEEKLY (1/W)
     Route: 042
  2. ONDASETRON [Concomitant]
     Dosage: UNK, UNKNOWN
     Route: 065
  3. OTHER RESPIRATORY SYSTEM PRODUCTS [Concomitant]
     Dosage: UNK, UNKNOWN
     Route: 065

REACTIONS (1)
  - OPHTHALMOPLEGIA [None]
